FAERS Safety Report 9467729 (Version 1)
Quarter: 2013Q3

REPORT INFORMATION
  Report Type: Spontaneous
  Country: US (occurrence: None)
  Receive Date: 20130819
  Receipt Date: 20130819
  Transmission Date: 20140515
  Serious: Yes (Other)
  Sender: FDA-Public Use
  Company Number: None

PATIENT
  Age: 3 Year
  Sex: Male
  Weight: 22.23 kg

DRUGS (2)
  1. MIRALAX [Suspect]
     Indication: HAEMATOCHEZIA
     Dosage: 2 TSP?TWICE DAILY?TAKEN BY MOUTH
     Route: 048
     Dates: start: 20100824, end: 20110224
  2. MIRALAX [Suspect]
     Indication: FAECES HARD
     Dosage: 2 TSP?TWICE DAILY?TAKEN BY MOUTH
     Route: 048
     Dates: start: 20100824, end: 20110224

REACTIONS (7)
  - Eczema [None]
  - Swelling face [None]
  - Erythema [None]
  - Skin ulcer [None]
  - Impetigo [None]
  - House dust allergy [None]
  - Drug hypersensitivity [None]
